FAERS Safety Report 9289059 (Version 2)
Quarter: 2013Q2

REPORT INFORMATION
  Report Type: Report from Study
  Country: ES (occurrence: ES)
  Receive Date: 20130514
  Receipt Date: 20130517
  Transmission Date: 20140414
  Serious: Yes (Other)
  Sender: FDA-Public Use
  Company Number: ES-009507513-1305ESP005165

PATIENT
  Age: 57 Year
  Sex: Male
  Weight: 85 kg

DRUGS (4)
  1. PEGINTERFERON ALFA-2B [Suspect]
     Indication: CHRONIC HEPATITIS C
     Dosage: 150 MICROGRAM, QW, PEN
     Route: 058
     Dates: start: 20100326, end: 20100903
  2. RIBAVIRIN [Suspect]
     Indication: CHRONIC HEPATITIS C
     Dosage: 400 MG AT BREAKFAST, 600 MG AT DINNER, DAILY
     Route: 048
     Dates: start: 20100326, end: 20100906
  3. BINOCRIT [Suspect]
     Indication: ANAEMIA
     Dosage: 10000 UI, TIW
     Route: 058
     Dates: start: 20100521, end: 20100907
  4. BINOCRIT [Suspect]
     Indication: CHRONIC HEPATITIS C

REACTIONS (1)
  - Dermatitis exfoliative [Recovered/Resolved]
